FAERS Safety Report 11095427 (Version 3)
Quarter: 2016Q4

REPORT INFORMATION
  Report Type: Spontaneous
  Country: CO (occurrence: CO)
  Receive Date: 20150506
  Receipt Date: 20161222
  Transmission Date: 20170206
  Serious: Yes (Hospitalization, Other)
  Sender: FDA-Public Use
  Company Number: CO-BIOMARINAP-CO-2015-106270

PATIENT
  Age: 7 Year
  Sex: Male
  Weight: 17 kg

DRUGS (1)
  1. ALDURAZYME [Suspect]
     Active Substance: LARONIDASE
     Indication: MUCOPOLYSACCHARIDOSIS I
     Dosage: 11.6 MG, QW
     Route: 041
     Dates: start: 2008

REACTIONS (7)
  - Hypoacusis [Unknown]
  - Cardiomyopathy [Unknown]
  - Tachypnoea [Unknown]
  - Dyspnoea [Unknown]
  - Blindness [Unknown]
  - Pneumonia [Unknown]
  - Pulmonary valve stenosis [Unknown]
